FAERS Safety Report 18568540 (Version 1)
Quarter: 2020Q4

REPORT INFORMATION
  Report Type: Spontaneous
  Country: ES (occurrence: ES)
  Receive Date: 20201202
  Receipt Date: 20201202
  Transmission Date: 20210114
  Serious: Yes (Hospitalization, Other)
  Sender: FDA-Public Use
  Company Number: ES-ACCORD-209767

PATIENT
  Age: 82 Year
  Sex: Female

DRUGS (9)
  1. NATECAL D FLAS [Concomitant]
     Dosage: 60 TABLETS
  2. CARVEDILOL/CARVEDILOL HYDROCHLODRIDE [Concomitant]
     Active Substance: CARVEDILOL HYDROCHLORIDE
     Dosage: STRENGTH: 6.25 MG
  3. EPLERENONE. [Suspect]
     Active Substance: EPLERENONE
     Indication: HYPERTENSION
     Dosage: 25 MG EVERY 24 HOURS
     Route: 048
     Dates: start: 20120616, end: 20200820
  4. LISINOPRIL. [Concomitant]
     Active Substance: LISINOPRIL
     Dosage: STRENGTH: 5 MG, 60 TABLETS
  5. AMERIDE (GLIMEPIRIDE) [Suspect]
     Active Substance: GLIMEPIRIDE
     Indication: HYPERTENSION
     Dosage: STRENGTH: 5 MG / 50 MG, 20 TABLETS
     Route: 048
     Dates: start: 20160504, end: 20200820
  6. PARACETAMOL [Concomitant]
     Active Substance: ACETAMINOPHEN
     Dosage: STRENGTH: 1,000 MG, ORAL SOLUTION / SUSPENSION 40 SACHETS
  7. DISTRANEURINE [Concomitant]
     Active Substance: CLOMETHIAZOLE
  8. OMEPRAZOLE DAVUR [Concomitant]
     Dosage: STRENGTH: 20 MG, HARD GASTRO-RESISTANT CAPSULES EFG, 28 CAPSULES
  9. VANDRAL RETARD [Concomitant]
     Active Substance: VENLAFAXINE HYDROCHLORIDE
     Dosage: STRENGTH: 75 MG

REACTIONS (2)
  - Fall [Unknown]
  - Hypotension [Recovered/Resolved]

NARRATIVE: CASE EVENT DATE: 20200820
